FAERS Safety Report 6348166-0 (Version None)
Quarter: 2009Q3

REPORT INFORMATION
  Report Type: 
  Country: None (occurrence: None)
  Receive Date: 20090908
  Receipt Date: 20090828
  Transmission Date: 20100115
  Serious: Yes (Hospitalization)
  Sender: FDA-Public Use
  Company Number: GXKR2009PL09469

PATIENT
  Age: 15 Day
  Sex: Male
  Weight: 2.2 kg

DRUGS (14)
  1. METHOTREXATE [Suspect]
     Indication: RHEUMATOID ARTHRITIS
     Dosage: TRANSPLACENTAL
     Route: 064
  2. DICLOFENAC (NGX) (DICLOFENAC) UNKNOWN [Suspect]
     Dosage: TRANSPLACENTAL
     Route: 064
  3. VANCOMYCIN [Suspect]
     Indication: CATHETER RELATED INFECTION
  4. VANCOMYCIN [Suspect]
     Indication: INTRAUTERINE INFECTION
  5. AMOXICILLIN AND CLAVULANATE POTASSIUM [Suspect]
     Indication: INTRAUTERINE INFECTION
  6. CEFOTAXIME [Suspect]
     Indication: PYREXIA
  7. FUROSEMIDE [Suspect]
     Indication: DYSURIA
     Dosage: LOW DOSES,
  8. NETILMICIN SULFATE [Suspect]
     Indication: CATHETER RELATED INFECTION
  9. NETILMICIN SULFATE [Suspect]
     Indication: INTRAUTERINE INFECTION
  10. STERIODS NOS (NO INGREDIENTS/SUBSTANCES) [Concomitant]
  11. FLUCONAZOLE [Concomitant]
  12. RED BLOOD CELLS [Concomitant]
  13. FRESH FROZEN PLASMA [Concomitant]
  14. PARENTERAL NUTRITION (PARENTERAL NUTRITION) [Concomitant]

REACTIONS (16)
  - CATHETER RELATED INFECTION [None]
  - COAGULOPATHY [None]
  - GENERAL PHYSICAL CONDITION ABNORMAL [None]
  - HAEMATURIA [None]
  - INTRAVENTRICULAR HAEMORRHAGE NEONATAL [None]
  - MATERNAL DRUGS AFFECTING FOETUS [None]
  - NEONATAL RESPIRATORY FAILURE [None]
  - PNEUMOTHORAX [None]
  - PREMATURE BABY [None]
  - PROTEINURIA [None]
  - PYREXIA [None]
  - RENAL FAILURE NEONATAL [None]
  - SCAR [None]
  - TREMOR NEONATAL [None]
  - TUBULOINTERSTITIAL NEPHRITIS [None]
  - UMBILICAL HERNIA [None]
